FAERS Safety Report 12534627 (Version 2)
Quarter: 2018Q1

REPORT INFORMATION
  Report Type: Report from Study
  Country: None (occurrence: US)
  Receive Date: 20160706
  Receipt Date: 20180118
  Transmission Date: 20180508
  Serious: Yes (Other)
  Sender: FDA-Public Use
  Company Number: US-ABBVIE-16P-163-1669735-00

PATIENT
  Age: 76 Year
  Sex: Female

DRUGS (2)
  1. VIEKIRA PAK [Suspect]
     Active Substance: DASABUVIR\OMBITASVIR\PARITAPREVIR\RITONAVIR
     Indication: CHRONIC HEPATITIS C
     Route: 048
     Dates: start: 20151009, end: 20160311
  2. RIBAVIRIN. [Suspect]
     Active Substance: RIBAVIRIN
     Indication: CHRONIC HEPATITIS C
     Route: 048
     Dates: start: 20151009, end: 20160311

REACTIONS (31)
  - Deafness [Unknown]
  - Headache [Unknown]
  - Balance disorder [Unknown]
  - Fall [Unknown]
  - Dizziness [Unknown]
  - Nausea [Unknown]
  - Asthenia [Unknown]
  - Confusional state [Unknown]
  - Diarrhoea [Unknown]
  - Ear pain [Unknown]
  - Anxiety [Unknown]
  - Jugular vein distension [Unknown]
  - Stress [Unknown]
  - Dyspnoea [Unknown]
  - Peripheral swelling [Unknown]
  - Loss of consciousness [Unknown]
  - Increased tendency to bruise [Unknown]
  - Rash [Unknown]
  - Urine analysis abnormal [Unknown]
  - Herpes zoster [Unknown]
  - Muscle spasms [Unknown]
  - Asthenia [Unknown]
  - Night blindness [Unknown]
  - Injection site pain [Unknown]
  - Dizziness [Unknown]
  - Headache [Unknown]
  - Feeling cold [Unknown]
  - Anaemia [Unknown]
  - Insomnia [Unknown]
  - Carotid artery occlusion [Unknown]
  - Vomiting [Unknown]

NARRATIVE: CASE EVENT DATE: 20151010
